FAERS Safety Report 9267170 (Version 50)
Quarter: 2016Q3

REPORT INFORMATION
  Report Type: Spontaneous
  Country: CA (occurrence: CA)
  Receive Date: 20130502
  Receipt Date: 20160920
  Transmission Date: 20161109
  Serious: Yes (Hospitalization, Other)
  Sender: FDA-Public Use
  Company Number: CA-ROCHE-1219830

PATIENT
  Age: 49 Year
  Sex: Female

DRUGS (39)
  1. XOLAIR [Suspect]
     Active Substance: OMALIZUMAB
     Route: 058
     Dates: start: 20140813
  2. XOLAIR [Suspect]
     Active Substance: OMALIZUMAB
     Route: 058
     Dates: start: 20160406
  3. XOLAIR [Suspect]
     Active Substance: OMALIZUMAB
     Route: 058
     Dates: start: 20130911
  4. XOLAIR [Suspect]
     Active Substance: OMALIZUMAB
     Route: 058
     Dates: start: 20140409
  5. XOLAIR [Suspect]
     Active Substance: OMALIZUMAB
     Route: 058
     Dates: start: 20141230
  6. XOLAIR [Suspect]
     Active Substance: OMALIZUMAB
     Route: 058
     Dates: start: 20160503
  7. XOLAIR [Suspect]
     Active Substance: OMALIZUMAB
     Route: 058
     Dates: start: 20131203
  8. XOLAIR [Suspect]
     Active Substance: OMALIZUMAB
     Route: 058
     Dates: start: 20141022
  9. XOLAIR [Suspect]
     Active Substance: OMALIZUMAB
     Route: 058
     Dates: start: 20150211
  10. XOLAIR [Suspect]
     Active Substance: OMALIZUMAB
     Route: 058
     Dates: start: 20160420
  11. ADVAIR HFA [Concomitant]
     Active Substance: FLUTICASONE PROPIONATE\SALMETEROL XINAFOATE
     Indication: PRODUCT USED FOR UNKNOWN INDICATION
     Route: 065
  12. ALVESCO [Concomitant]
     Active Substance: CICLESONIDE
     Indication: PRODUCT USED FOR UNKNOWN INDICATION
     Route: 065
  13. XOLAIR [Suspect]
     Active Substance: OMALIZUMAB
     Route: 058
     Dates: start: 20130326
  14. XOLAIR [Suspect]
     Active Substance: OMALIZUMAB
     Route: 058
     Dates: start: 20140312
  15. XOLAIR [Suspect]
     Active Substance: OMALIZUMAB
     Route: 058
     Dates: start: 20140507
  16. XOLAIR [Suspect]
     Active Substance: OMALIZUMAB
     Route: 058
     Dates: start: 20160713
  17. BENADRYL [Concomitant]
     Active Substance: DIPHENHYDRAMINE HYDROCHLORIDE
     Route: 048
     Dates: start: 20130925
  18. XOLAIR [Suspect]
     Active Substance: OMALIZUMAB
     Route: 058
     Dates: start: 20130508
  19. XOLAIR [Suspect]
     Active Substance: OMALIZUMAB
     Route: 058
     Dates: start: 20130925
  20. XOLAIR [Suspect]
     Active Substance: OMALIZUMAB
     Route: 058
     Dates: start: 20140716
  21. XOLAIR [Suspect]
     Active Substance: OMALIZUMAB
     Route: 058
     Dates: start: 20151007
  22. XOLAIR [Suspect]
     Active Substance: OMALIZUMAB
     Route: 058
     Dates: start: 20151020
  23. XOLAIR [Suspect]
     Active Substance: OMALIZUMAB
     Route: 058
     Dates: start: 20160518
  24. VENTOLINE [Concomitant]
     Active Substance: ALBUTEROL
     Indication: PRODUCT USED FOR UNKNOWN INDICATION
     Dosage: UNK
     Route: 065
  25. PREDNISONE. [Concomitant]
     Active Substance: PREDNISONE
  26. XOLAIR [Suspect]
     Active Substance: OMALIZUMAB
     Route: 058
     Dates: start: 20131010
  27. XOLAIR [Suspect]
     Active Substance: OMALIZUMAB
     Route: 058
     Dates: start: 20140827
  28. XOLAIR [Suspect]
     Active Substance: OMALIZUMAB
     Route: 058
     Dates: start: 20160810
  29. BENADRYL [Concomitant]
     Active Substance: DIPHENHYDRAMINE HYDROCHLORIDE
     Dosage: PRIOR TO INJECTION
     Route: 048
  30. XOLAIR [Suspect]
     Active Substance: OMALIZUMAB
     Indication: ASTHMA
     Route: 058
     Dates: start: 20130312
  31. XOLAIR [Suspect]
     Active Substance: OMALIZUMAB
     Route: 058
     Dates: start: 20130410
  32. XOLAIR [Suspect]
     Active Substance: OMALIZUMAB
     Route: 058
     Dates: start: 20130424
  33. XOLAIR [Suspect]
     Active Substance: OMALIZUMAB
     Route: 058
     Dates: start: 20160601
  34. XOLAIR [Suspect]
     Active Substance: OMALIZUMAB
     Route: 058
     Dates: start: 20160629
  35. XOLAIR [Suspect]
     Active Substance: OMALIZUMAB
     Route: 058
     Dates: start: 20150603
  36. XOLAIR [Suspect]
     Active Substance: OMALIZUMAB
     Route: 058
     Dates: start: 20160309
  37. XOLAIR [Suspect]
     Active Substance: OMALIZUMAB
     Route: 058
     Dates: start: 20160323
  38. XOLAIR [Suspect]
     Active Substance: OMALIZUMAB
     Route: 058
     Dates: start: 20160824
  39. BENADRYL [Concomitant]
     Active Substance: DIPHENHYDRAMINE HYDROCHLORIDE
     Route: 048

REACTIONS (71)
  - Bronchopulmonary aspergillosis [Recovering/Resolving]
  - Eye swelling [Unknown]
  - Pain [Recovered/Resolved]
  - Wheezing [Unknown]
  - Tinnitus [Unknown]
  - Headache [Recovered/Resolved]
  - Optic nerve disorder [Unknown]
  - Skin infection [Recovered/Resolved]
  - Blood glucose increased [Unknown]
  - Dyspnoea [Unknown]
  - Oropharyngeal pain [Unknown]
  - Dysgeusia [Recovering/Resolving]
  - Nasal congestion [Unknown]
  - Body temperature decreased [Unknown]
  - Palpitations [Unknown]
  - Arthritis [Unknown]
  - Neck pain [Unknown]
  - Sputum discoloured [Recovering/Resolving]
  - Heart rate increased [Not Recovered/Not Resolved]
  - Lung infection [Not Recovered/Not Resolved]
  - Pulmonary mycosis [Recovering/Resolving]
  - Pseudomonas infection [Unknown]
  - Breast mass [Unknown]
  - Rales [Not Recovered/Not Resolved]
  - Peripheral swelling [Unknown]
  - Discomfort [Recovered/Resolved]
  - Injury [Unknown]
  - Candida infection [Not Recovered/Not Resolved]
  - Oedema peripheral [Recovered/Resolved]
  - Abasia [Unknown]
  - Blood cholesterol increased [Unknown]
  - Sinusitis [Recovered/Resolved]
  - Back pain [Unknown]
  - Coagulation time prolonged [Unknown]
  - Pneumonia [Recovering/Resolving]
  - Pneumonia bacterial [Unknown]
  - Dizziness [Recovered/Resolved]
  - Malaise [Unknown]
  - Hypoaesthesia [Unknown]
  - Bronchitis [Unknown]
  - Metaplasia [Unknown]
  - Lung disorder [Unknown]
  - Localised infection [Recovered/Resolved]
  - Oral candidiasis [Unknown]
  - Osteoarthritis [Unknown]
  - Vaginal haemorrhage [Recovered/Resolved]
  - Middle insomnia [Unknown]
  - Road traffic accident [Unknown]
  - Respiratory disorder [Unknown]
  - Urticaria [Not Recovered/Not Resolved]
  - Cough [Recovering/Resolving]
  - Insomnia [Unknown]
  - Fatigue [Unknown]
  - Asthma [Recovering/Resolving]
  - Iron deficiency [Unknown]
  - Joint swelling [Recovering/Resolving]
  - Injection site swelling [Recovering/Resolving]
  - Contusion [Recovering/Resolving]
  - Pulmonary pain [Unknown]
  - Rash papular [Unknown]
  - Tachycardia [Unknown]
  - Haemorrhage [Recovered/Resolved]
  - Pain in extremity [Unknown]
  - Abdominal distension [Unknown]
  - Bacterial infection [Unknown]
  - Nasopharyngitis [Recovered/Resolved]
  - Uterine spasm [Recovered/Resolved]
  - Influenza [Recovered/Resolved]
  - Peripheral venous disease [Unknown]
  - Gastrooesophageal reflux disease [Recovering/Resolving]
  - Injection site erythema [Unknown]

NARRATIVE: CASE EVENT DATE: 20130312
